FAERS Safety Report 6989218-1 (Version None)
Quarter: 2010Q3

REPORT INFORMATION
  Report Type: 
  Country: None (occurrence: None)
  Receive Date: 20100916
  Receipt Date: 20091026
  Transmission Date: 20110219
  Serious: Yes (Hospitalization, Other)
  Sender: FDA-Public Use
  Company Number: AU-PFIZER INC-2009287980

PATIENT
  Age: 64 Year
  Sex: Female

DRUGS (2)
  1. LYRICA [Suspect]
     Indication: NEURALGIA
     Dosage: 25 MG, 1X/DAY
     Dates: start: 20090918
  2. CODEINE [Suspect]
     Dosage: UNK
     Dates: end: 20091001

REACTIONS (10)
  - AGGRESSION [None]
  - BACK PAIN [None]
  - CHRONIC OBSTRUCTIVE PULMONARY DISEASE [None]
  - COGNITIVE DISORDER [None]
  - FATIGUE [None]
  - MALAISE [None]
  - MOUTH ULCERATION [None]
  - OEDEMA PERIPHERAL [None]
  - PRURITUS [None]
  - SUICIDAL IDEATION [None]
